FAERS Safety Report 7884007-8 (Version None)
Quarter: 2011Q4

REPORT INFORMATION
  Report Type: 
  Country: None (occurrence: None)
  Receive Date: 20111102
  Receipt Date: 20111027
  Transmission Date: 20120403
  Serious: Yes (Death)
  Sender: FDA-Public Use
  Company Number: PHHY2011JP34061

PATIENT
  Sex: Male
  Weight: 58 kg

DRUGS (14)
  1. FLUCONAZOLE [Concomitant]
     Indication: RENAL TRANSPLANT
     Dosage: 5 MG, UNK
     Route: 048
  2. IMIPENEM AND CILASTATIN SODIUM [Concomitant]
     Route: 042
     Dates: start: 20110420
  3. NOREPINEPHRINE BITARTRATE [Concomitant]
     Dates: start: 20110420
  4. SIMULECT [Suspect]
     Indication: RENAL TRANSPLANT
     Dosage: 20 MG
     Route: 042
     Dates: start: 20110420
  5. NEOPHYLLIN [Concomitant]
     Route: 042
     Dates: start: 20110416
  6. ULTIVA [Concomitant]
     Dates: start: 20110420
  7. MYCOPHENOLATE MOFETIL (CELLCEPT) [Concomitant]
     Indication: RENAL TRANSPLANT
     Dosage: 100 MG, UNK
     Route: 048
  8. POLARAMINE [Concomitant]
     Route: 042
     Dates: start: 20110411
  9. FAMOTIDINE [Concomitant]
     Dates: start: 20110420
  10. RITUXAN [Concomitant]
     Dosage: 200 MG, UNK
     Route: 042
  11. PNEUMOCOCCAL VACCINE [Concomitant]
     Dosage: 1 DF
     Route: 058
     Dates: start: 20110411
  12. FLUID/ELECTROLYTE REPLACEMENT THERAPY [Concomitant]
  13. ALBUMIN (HUMAN) [Concomitant]
     Dosage: 250 ML
     Dates: start: 20110420
  14. METHYLPREDNISOLONE SODIUM SUCCINATE [Concomitant]
     Dosage: 1000 MG
     Dates: start: 20110420

REACTIONS (7)
  - HYPOTENSION [None]
  - BRADYCARDIA [None]
  - CENTRAL VENOUS PRESSURE INCREASED [None]
  - BLOOD PRESSURE DECREASED [None]
  - CARDIAC ARREST [None]
  - CARDIAC FAILURE [None]
  - SHOCK [None]
